FAERS Safety Report 23454175 (Version 1)
Quarter: 2024Q1

REPORT INFORMATION
  Report Type: Spontaneous
  Country: GB (occurrence: GB)
  Receive Date: 20240130
  Receipt Date: 20240130
  Transmission Date: 20240409
  Serious: Yes (Other)
  Sender: FDA-Public Use
  Company Number: GB-ABBVIE-5535837

PATIENT
  Age: 25 Year
  Sex: Male

DRUGS (4)
  1. OZURDEX [Suspect]
     Active Substance: DEXAMETHASONE
     Indication: Uveitis
     Dosage: TIME INTERVAL: AS NECESSARY: FORM STRENGTH 0.7MG INJECTION, STAT
     Route: 031
     Dates: start: 20230218
  2. OZURDEX [Suspect]
     Active Substance: DEXAMETHASONE
     Indication: Uveitis
  3. CIMZIA [Concomitant]
     Active Substance: CERTOLIZUMAB PEGOL
     Indication: Product used for unknown indication
     Dosage: MANY YEARS
  4. MYCOPHENOLIC ACID [Concomitant]
     Active Substance: MYCOPHENOLIC ACID
     Indication: Product used for unknown indication
     Dosage: MANY YEARS

REACTIONS (2)
  - Cataract [Unknown]
  - Intraocular pressure increased [Recovering/Resolving]

NARRATIVE: CASE EVENT DATE: 20230101
